FAERS Safety Report 5323314-X (Version None)
Quarter: 2007Q2

REPORT INFORMATION
  Report Type: 
  Country: None (occurrence: None)
  Receive Date: 20070221
  Receipt Date: 20061016
  Transmission Date: 20071010
  Serious: Yes (Hospitalization)
  Sender: FDA-Public Use
  Company Number: BDI-008732

PATIENT
  Age: 66 Year
  Sex: Male

DRUGS (4)
  1. ISOVUE-300 [Suspect]
     Indication: COMPUTERISED TOMOGRAM
     Dosage: 150 ML ONCE IV
     Route: 042
     Dates: start: 20061010, end: 20061010
  2. ISOVUE-300 [Suspect]
     Indication: LIVER FUNCTION TEST ABNORMAL
     Dosage: 150 ML ONCE IV
     Route: 042
     Dates: start: 20061010, end: 20061010
  3. PLAVIX [Concomitant]
  4. ASPIRIN [Concomitant]

REACTIONS (1)
  - ANAPHYLACTOID REACTION [None]
